FAERS Safety Report 15998916 (Version 1)
Quarter: 2019Q1

REPORT INFORMATION
  Report Type: Spontaneous
  Country: GB (occurrence: GB)
  Receive Date: 20190223
  Receipt Date: 20190223
  Transmission Date: 20190418
  Serious: Yes (Hospitalization)
  Sender: FDA-Public Use
  Company Number: GB-ACCORD-108902

PATIENT
  Age: 72 Year
  Sex: Female

DRUGS (9)
  1. ZOPICLONE [Concomitant]
     Active Substance: ZOPICLONE
     Dosage: 1 TO BE TAKEN AT NIGHT
  2. FUROSEMIDE. [Suspect]
     Active Substance: FUROSEMIDE
     Indication: PRODUCT USED FOR UNKNOWN INDICATION
     Dosage: 1 OR 2
  3. SERETIDE [Concomitant]
     Active Substance: FLUTICASONE PROPIONATE\SALMETEROL XINAFOATE
  4. PARACETAMOL [Concomitant]
     Active Substance: ACETAMINOPHEN
  5. TRAMADOL. [Concomitant]
     Active Substance: TRAMADOL
     Dosage: 4 TIMES A DAY
  6. SALBUTAMOL [Concomitant]
     Active Substance: ALBUTEROL
     Dosage: 2.5MG/2.5ML NEBULISER LIQUID UNIT DOSE VIALS, UP TO 4 TIMES A DAY
     Route: 055
  7. BRALTUS [Concomitant]
     Active Substance: TIOTROPIUM BROMIDE
     Dosage: 1 PUFF, 10 MICROGRAM INHALER
     Route: 055
  8. COLECALCIFEROL [Concomitant]
     Active Substance: CHOLECALCIFEROL
     Dosage: ALSO RECEIVED AS 4 DF, DOSAGE FORM TABLET
  9. SPIRIVA [Concomitant]
     Active Substance: TIOTROPIUM BROMIDE MONOHYDRATE

REACTIONS (2)
  - Acute kidney injury [Unknown]
  - Kidney infection [Recovered/Resolved]
